FAERS Safety Report 12541843 (Version 1)
Quarter: 2016Q3

REPORT INFORMATION
  Report Type: Spontaneous
  Country: KE (occurrence: KE)
  Receive Date: 20160708
  Receipt Date: 20160708
  Transmission Date: 20161109
  Serious: Yes (Hospitalization)
  Sender: FDA-Public Use
  Company Number: KE-BAYER-2016-127207

PATIENT
  Age: 45 Year
  Sex: Female

DRUGS (1)
  1. CIPROBAY 500 [Suspect]
     Active Substance: CIPROFLOXACIN
     Indication: URINARY TRACT INFECTION
     Dosage: 500 MG, BID
     Route: 048

REACTIONS (1)
  - Abscess oral [None]

NARRATIVE: CASE EVENT DATE: 20160627
